FAERS Safety Report 16226384 (Version 2)
Quarter: 2019Q2

REPORT INFORMATION
  Report Type: Spontaneous
  Country: JP (occurrence: JP)
  Receive Date: 20190423
  Receipt Date: 20190613
  Transmission Date: 20190711
  Serious: Yes (Life-Threatening, Hospitalization, Other)
  Sender: FDA-Public Use
  Company Number: JP-BRISTOL-MYERS SQUIBB COMPANY-BMS-2019-037655

PATIENT
  Age: 77 Year
  Sex: Male
  Weight: 47 kg

DRUGS (1)
  1. KENACORT-A [Suspect]
     Active Substance: TRIAMCINOLONE
     Indication: HYPOPHARYNGEAL CANCER
     Dosage: 40 MILLIGRAM OR LESS
     Route: 061
     Dates: start: 20170419

REACTIONS (1)
  - Pharyngeal abscess [Unknown]

NARRATIVE: CASE EVENT DATE: 201705
